FAERS Safety Report 6702206-5 (Version None)
Quarter: 2010Q2

REPORT INFORMATION
  Report Type: 
  Country: None (occurrence: None)
  Receive Date: 20100429
  Receipt Date: 20100421
  Transmission Date: 20101027
  Serious: Yes (Death, Hospitalization)
  Sender: FDA-Public Use
  Company Number: FR-PFIZER INC-2010050359

PATIENT
  Sex: Female

DRUGS (3)
  1. CAMPTOSAR [Suspect]
     Indication: BILE DUCT CANCER
     Dosage: UNK
     Route: 041
  2. FLUOROURACIL [Concomitant]
     Indication: BILE DUCT CANCER
     Dosage: UNK
  3. FOLINIC ACID [Concomitant]
     Indication: BILE DUCT CANCER
     Dosage: UNK

REACTIONS (5)
  - CYANOSIS [None]
  - DEATH [None]
  - DYSPNOEA [None]
  - HYPERHIDROSIS [None]
  - PRURITUS [None]
